FAERS Safety Report 23788201 (Version 2)
Quarter: 2024Q2

REPORT INFORMATION
  Report Type: Spontaneous
  Country: CA (occurrence: CA)
  Receive Date: 20240426
  Receipt Date: 20240507
  Transmission Date: 20240716
  Serious: Yes (Life-Threatening, Hospitalization, Other)
  Sender: FDA-Public Use
  Company Number: CA-PFIZER INC-202400024004

PATIENT
  Age: 71 Year
  Sex: Female

DRUGS (3)
  1. RUXIENCE [Suspect]
     Active Substance: RITUXIMAB-PVVR
     Indication: Rheumatoid arthritis
     Dosage: 1000 MG, DAY 1 AND DAY 15
     Route: 042
     Dates: start: 20221130, end: 20221214
  2. CORTISONE [Concomitant]
     Active Substance: CORTISONE
     Indication: Rheumatoid arthritis
     Dosage: UNK
     Dates: start: 202311
  3. RITUXAN [Concomitant]
     Active Substance: RITUXIMAB
     Dosage: 1 DF

REACTIONS (3)
  - Pulmonary fibrosis [Not Recovered/Not Resolved]
  - Bacterial infection [Unknown]
  - Infective aortitis [Not Recovered/Not Resolved]

NARRATIVE: CASE EVENT DATE: 20240101
